FAERS Safety Report 7631712-4 (Version None)
Quarter: 2011Q3

REPORT INFORMATION
  Report Type: 
  Country: None (occurrence: None)
  Receive Date: 20110725
  Receipt Date: 20110712
  Transmission Date: 20111222
  Serious: Yes (Other)
  Sender: FDA-Public Use
  Company Number: DE-ELI_LILLY_AND_COMPANY-DE201107003269

PATIENT
  Age: 73 Year
  Sex: Female

DRUGS (3)
  1. CALCIUM CARBONATE [Concomitant]
  2. FORTEO [Suspect]
     Indication: OSTEOPOROSIS
     Dosage: UNK, QD
     Route: 058
     Dates: start: 20100423
  3. VITAMIN D [Concomitant]

REACTIONS (4)
  - MALAISE [None]
  - DIZZINESS [None]
  - WEIGHT INCREASED [None]
  - LOSS OF CONSCIOUSNESS [None]
